FAERS Safety Report 13938503 (Version 1)
Quarter: 2017Q3

REPORT INFORMATION
  Report Type: Spontaneous
  Country: US (occurrence: US)
  Receive Date: 20170905
  Receipt Date: 20170905
  Transmission Date: 20171127
  Serious: Yes (Disabling)
  Sender: FDA-Public Use
  Company Number: None

PATIENT
  Age: 48 Year
  Sex: Male
  Weight: 85.5 kg

DRUGS (1)
  1. CLADRIBINE. [Suspect]
     Active Substance: CLADRIBINE
     Indication: HAIRY CELL LEUKAEMIA
     Route: 041
     Dates: start: 20000901, end: 20000908

REACTIONS (5)
  - Confusional state [None]
  - Infusion related reaction [None]
  - Disorientation [None]
  - Neurotoxicity [None]
  - Peripheral sensorimotor neuropathy [None]

NARRATIVE: CASE EVENT DATE: 20000901
